FAERS Safety Report 9415658 (Version 1)
Quarter: 2013Q3

REPORT INFORMATION
  Report Type: Spontaneous
  Country: US (occurrence: US)
  Receive Date: 20130723
  Receipt Date: 20130723
  Transmission Date: 20140515
  Serious: Yes (Other)
  Sender: FDA-Public Use
  Company Number: CHPA2013US011299

PATIENT
  Age: 53 Year
  Sex: Female

DRUGS (5)
  1. PRIVATE LABEL STRENGTH UNKNOWN [Suspect]
     Indication: SMOKING CESSATION THERAPY
     Dosage: UNK, UNK
     Route: 062
     Dates: start: 201205
  2. PRIVATE LABEL STRENGTH UNKNOWN [Suspect]
     Dosage: UNK, UNK
     Route: 062
  3. AMBIEN [Concomitant]
  4. ANTIBIOTICS [Concomitant]
     Indication: COUGH
     Dosage: UNK
  5. ANTIBIOTICS [Concomitant]
     Indication: PAIN

REACTIONS (5)
  - Chronic obstructive pulmonary disease [Unknown]
  - Pulmonary fibrosis [Unknown]
  - Cataract [Unknown]
  - Mood swings [Unknown]
  - Hyperhidrosis [Unknown]
